FAERS Safety Report 13425976 (Version 2)
Quarter: 2017Q2

REPORT INFORMATION
  Report Type: Spontaneous
  Country: US (occurrence: US)
  Receive Date: 20170411
  Receipt Date: 20170508
  Transmission Date: 20170830
  Serious: No
  Sender: FDA-Public Use
  Company Number: US-JNJFOC-20170307584

PATIENT
  Sex: Female
  Weight: 54.43 kg

DRUGS (10)
  1. DURAGESIC [Suspect]
     Active Substance: FENTANYL
     Indication: PAIN MANAGEMENT
     Route: 062
     Dates: start: 2016, end: 2016
  2. GABAPENTIN. [Concomitant]
     Active Substance: GABAPENTIN
     Route: 065
  3. MECLIZINE [Concomitant]
     Active Substance: MECLIZINE HYDROCHLORIDE
     Route: 065
  4. CYCLOBENZAPRINE. [Concomitant]
     Active Substance: CYCLOBENZAPRINE
     Route: 065
  5. RESTORIL [Concomitant]
     Active Substance: TEMAZEPAM
     Route: 065
  6. OXYCODONE [Concomitant]
     Active Substance: OXYCODONE
     Route: 065
  7. LORAZEPAM. [Concomitant]
     Active Substance: LORAZEPAM
     Indication: ANXIETY
     Route: 065
  8. DURAGESIC [Suspect]
     Active Substance: FENTANYL
     Indication: PAIN MANAGEMENT
     Route: 062
     Dates: start: 2016
  9. CYMBALTA [Concomitant]
     Active Substance: DULOXETINE HYDROCHLORIDE
     Route: 065
  10. FUROSEMIDE. [Concomitant]
     Active Substance: FUROSEMIDE
     Indication: MENIERE^S DISEASE
     Route: 065

REACTIONS (7)
  - Memory impairment [Unknown]
  - Drug dose omission [Unknown]
  - Night sweats [Unknown]
  - Pain [Not Recovered/Not Resolved]
  - Hypersomnia [Unknown]
  - Underdose [Unknown]
  - Product quality issue [Unknown]

NARRATIVE: CASE EVENT DATE: 2016
